FAERS Safety Report 19605064 (Version 6)
Quarter: 2021Q4

REPORT INFORMATION
  Report Type: Report from Study
  Country: MX (occurrence: MX)
  Receive Date: 20210723
  Receipt Date: 20211202
  Transmission Date: 20220304
  Serious: Yes (Other)
  Sender: FDA-Public Use
  Company Number: MX-BRISTOL-MYERS SQUIBB COMPANY-BMS-2021-069455

PATIENT
  Age: 69 Year
  Sex: Male

DRUGS (5)
  1. NIVOLUMAB [Suspect]
     Active Substance: NIVOLUMAB
     Indication: Malignant melanoma
     Dosage: 86 MILLIGRAM, Q2WK
     Route: 042
     Dates: start: 20210421
  2. NIVOLUMAB [Suspect]
     Active Substance: NIVOLUMAB
     Dosage: 220 MILLIGRAM, Q2WK
     Route: 042
     Dates: start: 20210428
  3. NIVOLUMAB [Suspect]
     Active Substance: NIVOLUMAB
     Dosage: 220 MILLIGRAM EVERY 15 DAYS
     Route: 042
     Dates: start: 20210922, end: 20210922
  4. NIVOLUMAB [Suspect]
     Active Substance: NIVOLUMAB
     Dosage: 200 MILLIGRAM FORTNIGHTLY
     Route: 042
     Dates: start: 20211006, end: 20211007
  5. NIVOLUMAB [Suspect]
     Active Substance: NIVOLUMAB
     Dosage: 220 MILLIGRAM FORTNIGHTLY
     Route: 042
     Dates: start: 20210421, end: 20211020

REACTIONS (8)
  - Blood blister [Recovered/Resolved with Sequelae]
  - Decreased appetite [Recovered/Resolved with Sequelae]
  - Nausea [Recovered/Resolved with Sequelae]
  - Pyrexia [Recovered/Resolved with Sequelae]
  - Lymphadenitis [Recovered/Resolved with Sequelae]
  - Malignant neoplasm progression [Unknown]
  - Weight decreased [Recovered/Resolved with Sequelae]
  - Off label use [Unknown]

NARRATIVE: CASE EVENT DATE: 20210530
